FAERS Safety Report 10103158 (Version 3)
Quarter: 2014Q2

REPORT INFORMATION
  Report Type: Spontaneous
  Country: US (occurrence: US)
  Receive Date: 20140424
  Receipt Date: 20140522
  Transmission Date: 20141212
  Serious: Yes (Hospitalization)
  Sender: FDA-Public Use
  Company Number: US-GLAXOSMITHKLINE-A1070651A

PATIENT
  Age: 57 Year
  Sex: Female

DRUGS (5)
  1. ADVAIR [Suspect]
     Indication: RESPIRATORY DISORDER
     Route: 065
     Dates: start: 20080516
  2. IMITREX NASAL SPRAY [Suspect]
     Indication: PRODUCT USED FOR UNKNOWN INDICATION
     Dosage: 20MG UNKNOWN
     Route: 065
     Dates: start: 20090311
  3. CELEXA [Concomitant]
  4. ELAVIL [Concomitant]
  5. LORAZEPAM [Concomitant]

REACTIONS (7)
  - Pneumonia [Unknown]
  - Accident [Unknown]
  - Herpes zoster [Not Recovered/Not Resolved]
  - Asthma [Not Recovered/Not Resolved]
  - Impaired work ability [Unknown]
  - Wheezing [Not Recovered/Not Resolved]
  - Therapy cessation [Unknown]
